FAERS Safety Report 19221578 (Version 1)
Quarter: 2021Q2

REPORT INFORMATION
  Report Type: Spontaneous
  Country: US (occurrence: US)
  Receive Date: 20210505
  Receipt Date: 20210505
  Transmission Date: 20210717
  Serious: No
  Sender: FDA-Public Use
  Company Number: None

PATIENT
  Sex: Female

DRUGS (1)
  1. REMICADE [Suspect]
     Active Substance: INFLIXIMAB
     Indication: CROHN^S DISEASE
     Dosage: ?          OTHER DOSE:5MG/KG;OTHER FREQUENCY:EVERY 8 WEEKS ;?
     Route: 042
     Dates: start: 20201105, end: 202012

REACTIONS (3)
  - Condition aggravated [None]
  - Drug ineffective [None]
  - Abdominal symptom [None]
